FAERS Safety Report 8610009-X (Version None)
Quarter: 2012Q3

REPORT INFORMATION
  Report Type: 
  Country: None (occurrence: None)
  Receive Date: 20120822
  Receipt Date: 20120703
  Transmission Date: 20120928
  Serious: No
  Sender: FDA-Public Use
  Company Number: US-009507513-1207USA010534

PATIENT

DRUGS (2)
  1. MIRALAX [Suspect]
     Indication: MEDICAL OBSERVATION
  2. MIRALAX [Suspect]
     Indication: COLONOSCOPY
     Dosage: 119 G, ONCE
     Route: 048

REACTIONS (4)
  - ABNORMAL FAECES [None]
  - DIARRHOEA [None]
  - OFF LABEL USE [None]
  - OVERDOSE [None]
